FAERS Safety Report 7888974-8 (Version None)
Quarter: 2011Q4

REPORT INFORMATION
  Report Type: 
  Country: None (occurrence: None)
  Receive Date: 20111103
  Receipt Date: 20111020
  Transmission Date: 20120403
  Serious: Yes (Other)
  Sender: FDA-Public Use
  Company Number: PHHY2011US93205

PATIENT
  Age: 8 Month
  Sex: Male

DRUGS (3)
  1. DAPSONE [Concomitant]
  2. CYCLOSPORINE [Suspect]
  3. PREDNISONE [Concomitant]

REACTIONS (5)
  - BLISTER [None]
  - SKIN LESION [None]
  - SCAR [None]
  - ACUTE FEBRILE NEUTROPHILIC DERMATOSIS [None]
  - CUTIS LAXA [None]
